FAERS Safety Report 10221833 (Version 1)
Quarter: 2014Q2

REPORT INFORMATION
  Report Type: Spontaneous
  Country: US (occurrence: None)
  Receive Date: 20140606
  Receipt Date: 20140606
  Transmission Date: 20141212
  Serious: Yes (Other)
  Sender: FDA-Public Use
  Company Number: None

PATIENT
  Age: 57 Year
  Sex: Male
  Weight: 124.74 kg

DRUGS (1)
  1. NIACIN [Suspect]
     Indication: BLOOD CHOLESTEROL ABNORMAL
     Dosage: 1 AT BEDTIME TAKEN BY MOUTH
     Route: 048
     Dates: start: 20140528, end: 20140531

REACTIONS (4)
  - Flushing [None]
  - Diarrhoea [None]
  - Body temperature increased [None]
  - Product substitution issue [None]
